FAERS Safety Report 9582330 (Version 1)
Quarter: 2013Q4

REPORT INFORMATION
  Report Type: Spontaneous
  Country: US (occurrence: US)
  Receive Date: 20131002
  Receipt Date: 20131002
  Transmission Date: 20140711
  Serious: No
  Sender: FDA-Public Use
  Company Number: US-AMGEN-USASP2013039826

PATIENT
  Age: 70 Year
  Sex: Female
  Weight: 78.91 kg

DRUGS (15)
  1. ENBREL [Suspect]
     Indication: PRODUCT USED FOR UNKNOWN INDICATION
     Dosage: 50 MG, QWK
     Route: 065
  2. DUONEB [Concomitant]
     Dosage: UNK, SOL
  3. PRILOSEC                           /00661201/ [Concomitant]
     Dosage: 10 MG, UNK
  4. PROAIR HFA [Concomitant]
     Dosage: UNK, AER
  5. PLAVIX [Concomitant]
     Dosage: 75 MG, UNK
  6. CLONIDINE [Concomitant]
     Dosage: 0.1 MG, UNK
  7. MAXZIDE [Concomitant]
     Dosage: 25, UNK
  8. COZAAR [Concomitant]
     Dosage: 100 MG, UNK
  9. MAGNESIUM [Concomitant]
     Dosage: 200 MG, UNK
  10. PREDNISONE [Concomitant]
     Dosage: 1 MG, UNK
  11. FOLIC ACID [Concomitant]
     Dosage: 1 MG, UNK
  12. FLEXERIL                           /00428402/ [Concomitant]
     Dosage: 10 MG, UNK
  13. KLOR-CON M10 [Concomitant]
     Dosage: 10 MEQ, UNK, ER
  14. VITAMIN D                          /00107901/ [Concomitant]
     Dosage: 1000 UNIT, UNK
  15. CALCIUM [Concomitant]
     Dosage: 500,UNK

REACTIONS (1)
  - Injection site bruising [Recovered/Resolved]
